FAERS Safety Report 15068119 (Version 1)
Quarter: 2018Q2

REPORT INFORMATION
  Report Type: Spontaneous
  Country: US (occurrence: US)
  Receive Date: 20180626
  Receipt Date: 20180626
  Transmission Date: 20180711
  Serious: Yes (Hospitalization, Other)
  Sender: FDA-Public Use
  Company Number: US-AMGEN-USASP2018083168

PATIENT
  Age: 76 Year
  Sex: Female

DRUGS (1)
  1. PROLIA [Suspect]
     Active Substance: DENOSUMAB
     Indication: OSTEOPOROSIS POSTMENOPAUSAL
     Dosage: UNK
     Route: 065
     Dates: end: 201505

REACTIONS (10)
  - Knee arthroplasty [Unknown]
  - Tooth fracture [Unknown]
  - Osteonecrosis of jaw [Recovering/Resolving]
  - Tooth loss [Unknown]
  - Gingival recession [Unknown]
  - Patella fracture [Unknown]
  - Toothache [Unknown]
  - Spinal laminectomy [Unknown]
  - Tooth abscess [Unknown]
  - Joint dislocation [Unknown]

NARRATIVE: CASE EVENT DATE: 20161004
